FAERS Safety Report 8142185-X (Version None)
Quarter: 2012Q1

REPORT INFORMATION
  Report Type: 
  Country: None (occurrence: None)
  Receive Date: 20120216
  Receipt Date: 20120207
  Transmission Date: 20120608
  Serious: Yes (Other)
  Sender: FDA-Public Use
  Company Number: US-ROCHE-1040427

PATIENT

DRUGS (4)
  1. AVASTIN [Suspect]
     Indication: PANCREATIC CARCINOMA
  2. GEMCITABINE HYDROCHLORIDE [Suspect]
     Indication: PANCREATIC CARCINOMA
  3. FLUOROURACIL [Suspect]
     Indication: PANCREATIC CARCINOMA
  4. XELODA [Suspect]
     Indication: PANCREATIC CARCINOMA

REACTIONS (1)
  - GASTROINTESTINAL TOXICITY [None]
